FAERS Safety Report 8676209 (Version 4)
Quarter: 2013Q1

REPORT INFORMATION
  Report Type: Spontaneous
  Country: US (occurrence: US)
  Receive Date: 20120720
  Receipt Date: 20130308
  Transmission Date: 20140127
  Serious: Yes (Hospitalization)
  Sender: FDA-Public Use
  Company Number: US-B.I. PHARMACEUTICALS,INC./RIDGEFIELD-2012-BP-16082BP

PATIENT
  Age: 75 Year
  Sex: Male
  Weight: 111.13 kg

DRUGS (9)
  1. PRADAXA [Suspect]
     Indication: ATRIAL FIBRILLATION
     Dosage: 300 MG
     Route: 048
     Dates: start: 20110201, end: 20110216
  2. AMLODIPINE [Concomitant]
     Dosage: 10 MG
     Route: 048
     Dates: start: 2005
  3. FUROSEMIDE [Concomitant]
     Dosage: 40 MG
     Route: 048
     Dates: start: 2005
  4. METFORMIN [Concomitant]
     Dosage: 1000 MG
     Route: 048
     Dates: start: 2005
  5. RAMIPRIL [Concomitant]
     Dosage: 10 MG
     Route: 048
     Dates: start: 2005
  6. SIMVASTATIN [Concomitant]
     Dosage: 40 MG
     Route: 048
     Dates: start: 2005
  7. CIPROFLOXACIN [Concomitant]
     Dosage: 500 MG
     Route: 048
  8. HYDROCODONE-ACETAMINOPHEN [Concomitant]
     Route: 048
  9. LOW DOSE ASPIRIN [Concomitant]
     Dates: start: 2005

REACTIONS (4)
  - Haemorrhage [Unknown]
  - Haematuria [Recovered/Resolved]
  - Haemorrhagic anaemia [Unknown]
  - Rectal haemorrhage [Unknown]
